FAERS Safety Report 22162515 (Version 2)
Quarter: 2023Q2

REPORT INFORMATION
  Report Type: Spontaneous
  Country: US (occurrence: US)
  Receive Date: 20230331
  Receipt Date: 20230424
  Transmission Date: 20230722
  Serious: No
  Sender: FDA-Public Use
  Company Number: US-INSUD PHARMA-2303US01835

PATIENT

DRUGS (11)
  1. SLYND [Suspect]
     Active Substance: DROSPIRENONE
     Indication: Menstrual cycle management
     Dosage: 1, QD
     Route: 048
     Dates: start: 20230223, end: 20230309
  2. BACLOFEN [Concomitant]
     Active Substance: BACLOFEN
  3. SENNA LEAF [Concomitant]
     Active Substance: SENNA LEAF
  4. VITAMIN D NOS [Concomitant]
     Active Substance: VITAMIN D NOS
  5. CULTURELLE [Concomitant]
     Active Substance: LACTOBACILLUS RHAMNOSUS
  6. FYCOMPA [Concomitant]
     Active Substance: PERAMPANEL
  7. TOPAMAX [Concomitant]
     Active Substance: TOPIRAMATE
  8. ONFI [Concomitant]
     Active Substance: CLOBAZAM
  9. CLOBAZAM [Concomitant]
     Active Substance: CLOBAZAM
  10. PRILOSEC [Concomitant]
     Active Substance: OMEPRAZOLE MAGNESIUM
  11. CITALOPRAM [Concomitant]
     Active Substance: CITALOPRAM HYDROBROMIDE

REACTIONS (2)
  - Hypersomnia [Recovered/Resolved]
  - Off label use [Unknown]

NARRATIVE: CASE EVENT DATE: 20230223
